FAERS Safety Report 12173909 (Version 1)
Quarter: 2016Q1

REPORT INFORMATION
  Report Type: Spontaneous
  Country: US (occurrence: None)
  Receive Date: 20160311
  Receipt Date: 20160311
  Transmission Date: 20160526
  Serious: No
  Sender: FDA-Public Use
  Company Number: None

PATIENT
  Age: 53 Year
  Sex: Female

DRUGS (4)
  1. SIMPONI [Suspect]
     Active Substance: GOLIMUMAB
     Indication: RHEUMATOID ARTHRITIS
     Dosage: 1 SYRINGE ONCE PER MONTH SUBCUTANEOUS
     Route: 058
     Dates: start: 20151228, end: 20160120
  2. METHOTREXATE [Concomitant]
     Active Substance: METHOTREXATE
  3. ACTEMRA [Concomitant]
     Active Substance: TOCILIZUMAB
  4. RITUXAN [Concomitant]
     Active Substance: RITUXIMAB

REACTIONS (4)
  - Malaise [None]
  - Abdominal pain upper [None]
  - Headache [None]
  - Vomiting [None]

NARRATIVE: CASE EVENT DATE: 20151228
